FAERS Safety Report 7022832-6 (Version None)
Quarter: 2010Q3

REPORT INFORMATION
  Report Type: 
  Country: None (occurrence: None)
  Receive Date: 20100930
  Receipt Date: 20100919
  Transmission Date: 20110219
  Serious: Yes (Death, Hospitalization)
  Sender: FDA-Public Use
  Company Number: B0672797A

PATIENT
  Age: 11 Year
  Sex: Male

DRUGS (2)
  1. LAMICTAL [Suspect]
     Indication: EPILEPSY
     Dosage: 5MG THREE TIMES PER DAY
     Route: 048
     Dates: start: 20071201, end: 20100801
  2. DEPAKENE [Concomitant]
     Indication: EPILEPSY
     Dosage: 200MG TWICE PER DAY
     Route: 048

REACTIONS (5)
  - CONVULSION [None]
  - LOSS OF CONSCIOUSNESS [None]
  - MENINGITIS ASEPTIC [None]
  - PYREXIA [None]
  - RESPIRATORY DISORDER [None]
